FAERS Safety Report 4323017-4 (Version None)
Quarter: 2004Q1

REPORT INFORMATION
  Report Type: 
  Country: None (occurrence: None)
  Receive Date: 20040322
  Receipt Date: 20040305
  Transmission Date: 20041129
  Serious: Yes (Hospitalization)
  Sender: FDA-Public Use
  Company Number: 2004202952US

PATIENT
  Sex: Male

DRUGS (4)
  1. NICOTROL [Suspect]
     Indication: SMOKING CESSATION THERAPY
     Dosage: 4 MG/KG, QD, BUCCAL
     Route: 002
     Dates: start: 20031201
  2. ZOLOFT [Concomitant]
  3. RESTORIL [Concomitant]
  4. TRAZODONE HCL [Concomitant]

REACTIONS (4)
  - APHASIA [None]
  - LOSS OF CONSCIOUSNESS [None]
  - TRANSIENT ISCHAEMIC ATTACK [None]
  - URINARY INCONTINENCE [None]
